FAERS Safety Report 17508353 (Version 3)
Quarter: 2020Q2

REPORT INFORMATION
  Report Type: Spontaneous
  Country: US (occurrence: US)
  Receive Date: 20200306
  Receipt Date: 20200527
  Transmission Date: 20200713
  Serious: Yes (Other)
  Sender: FDA-Public Use
  Company Number: US-SA-2020SA058086

PATIENT
  Age: 66 Year
  Sex: Female

DRUGS (2)
  1. DUPIXENT [Suspect]
     Active Substance: DUPILUMAB
     Indication: DERMATITIS ATOPIC
     Dosage: 300 MG, QOW
     Route: 058
     Dates: start: 2020
  2. DUPIXENT [Suspect]
     Active Substance: DUPILUMAB
     Dosage: 300 MG, QOW
     Route: 058
     Dates: start: 20200226, end: 2020

REACTIONS (9)
  - Rash maculo-papular [Recovered/Resolved]
  - Injection site reaction [Unknown]
  - Skin fissures [Recovering/Resolving]
  - Product dose omission [Recovering/Resolving]
  - Erythema [Recovering/Resolving]
  - Pruritus [Recovered/Resolved]
  - Eczema [Recovering/Resolving]
  - Dermatitis [Recovered/Resolved]
  - Skin mass [Recovering/Resolving]

NARRATIVE: CASE EVENT DATE: 2020
